FAERS Safety Report 8270254-2 (Version None)
Quarter: 2012Q1

REPORT INFORMATION
  Report Type: 
  Country: None (occurrence: None)
  Receive Date: 20120327
  Receipt Date: 20100308
  Transmission Date: 20120608
  Serious: Yes (Disabling, Other)
  Sender: FDA-Public Use
  Company Number: PHHY2010US07429

PATIENT
  Age: 53 Year
  Sex: Female
  Weight: 133.5 kg

DRUGS (4)
  1. CRESTOR (ROSUVASTATIN CALCIUIM) [Concomitant]
  2. GLEEVEC [Suspect]
     Indication: CHRONIC MYELOID LEUKAEMIA
     Dosage: 400 MG, QD, ORAL
     Route: 048
     Dates: start: 20090613, end: 20100203
  3. HYDROXYZINE [Concomitant]
  4. IBUPROFEN [Concomitant]

REACTIONS (5)
  - OEDEMA PERIPHERAL [None]
  - PERIORBITAL OEDEMA [None]
  - PANCYTOPENIA [None]
  - ALOPECIA [None]
  - WEIGHT INCREASED [None]
